FAERS Safety Report 13776898 (Version 5)
Quarter: 2018Q2

REPORT INFORMATION
  Report Type: Report from Study
  Country: US (occurrence: US)
  Receive Date: 20170721
  Receipt Date: 20180614
  Transmission Date: 20180711
  Serious: Yes (Other)
  Sender: FDA-Public Use
  Company Number: US-SA-2017SA014139

PATIENT
  Age: 36 Year
  Sex: Male

DRUGS (4)
  1. CHANTIX [Concomitant]
     Active Substance: VARENICLINE TARTRATE
     Indication: TOBACCO USER
     Dosage: UNK UNK, UNK
  2. LEMTRADA [Suspect]
     Active Substance: ALEMTUZUMAB
     Indication: MULTIPLE SCLEROSIS
     Dosage: 12 MG,QD
     Route: 041
     Dates: start: 20150413, end: 20150417
  3. LEMTRADA [Suspect]
     Active Substance: ALEMTUZUMAB
     Dosage: 12 MG,QD
     Route: 041
     Dates: start: 201606, end: 20160606
  4. TERIFLUNOMIDE [Suspect]
     Active Substance: TERIFLUNOMIDE

REACTIONS (11)
  - Influenza [Recovered/Resolved]
  - Stress [Not Recovered/Not Resolved]
  - Rheumatic fever [Unknown]
  - Pharyngitis streptococcal [Unknown]
  - Rheumatoid arthritis [Unknown]
  - Hyperventilation [Recovered/Resolved]
  - Insomnia [Unknown]
  - Herpes zoster [Unknown]
  - Arthritis [Not Recovered/Not Resolved]
  - Fatigue [Unknown]
  - Infection [Unknown]

NARRATIVE: CASE EVENT DATE: 2015
